FAERS Safety Report 12456384 (Version 2)
Quarter: 2016Q2

REPORT INFORMATION
  Report Type: Spontaneous
  Country: US (occurrence: US)
  Receive Date: 20160610
  Receipt Date: 20160615
  Transmission Date: 20160815
  Serious: No
  Sender: FDA-Public Use
  Company Number: US-MDT-ADR-2016-01056

PATIENT
  Age: 56 Year
  Sex: Female

DRUGS (2)
  1. BACLOFEN. [Suspect]
     Active Substance: BACLOFEN
     Dosage: 230 MCG/DAY
     Route: 037
     Dates: end: 201605
  2. BACLOFEN. [Suspect]
     Active Substance: BACLOFEN
     Dosage: 190 MCG/DAY
     Route: 037
     Dates: start: 201605

REACTIONS (2)
  - Urinary incontinence [Unknown]
  - Hypotonia [Unknown]

NARRATIVE: CASE EVENT DATE: 20151216
